FAERS Safety Report 7917024-X (Version None)
Quarter: 2011Q4

REPORT INFORMATION
  Report Type: 
  Country: None (occurrence: None)
  Receive Date: 20111116
  Receipt Date: 20111110
  Transmission Date: 20120403
  Serious: Yes (Hospitalization)
  Sender: FDA-Public Use
  Company Number: DE-SANOFI-AVENTIS-2011SA056705

PATIENT
  Age: 62 Year
  Sex: Male
  Weight: 93 kg

DRUGS (5)
  1. XELODA [Suspect]
     Route: 048
     Dates: start: 20110829, end: 20110901
  2. THERAPEUTIC RADIOPHARMACEUTICALS [Suspect]
     Indication: RECTAL CANCER
     Dosage: 1.8 GY ON D1-33 W/O WEEKENDS
     Dates: start: 20110418, end: 20110527
  3. OXALIPLATIN [Suspect]
     Route: 042
     Dates: start: 20110829, end: 20110829
  4. XELODA [Suspect]
     Indication: RECTAL CANCER
     Route: 048
     Dates: start: 20110418
  5. OXALIPLATIN [Suspect]
     Indication: RECTAL CANCER
     Route: 042
     Dates: start: 20110418, end: 20110418

REACTIONS (2)
  - DEHYDRATION [None]
  - RENAL FAILURE [None]
